FAERS Safety Report 7256990-5 (Version None)
Quarter: 2011Q1

REPORT INFORMATION
  Report Type: 
  Country: None (occurrence: None)
  Receive Date: 20110129
  Receipt Date: 20100618
  Transmission Date: 20110831
  Serious: No
  Sender: FDA-Public Use
  Company Number: US-ABBOTT-10P-163-0652618-00

PATIENT
  Sex: Male
  Weight: 88.53 kg

DRUGS (6)
  1. HUMIRA [Suspect]
     Route: 058
     Dates: start: 20040101, end: 20090801
  2. METHOTREXATE [Concomitant]
     Indication: RHEUMATOID ARTHRITIS
     Route: 048
  3. METOPROLOL [Concomitant]
     Indication: CARDIAC DISORDER
     Route: 048
  4. HUMIRA [Suspect]
     Indication: RHEUMATOID ARTHRITIS
     Route: 058
     Dates: start: 20090801
  5. DIOVAN [Concomitant]
     Indication: RENAL DISORDER
     Route: 048
  6. HUMALOG [Concomitant]
     Indication: DIABETES MELLITUS
     Dosage: VIA INSULIN PUMP 1 U/HR
     Route: 058

REACTIONS (1)
  - DRUG ADMINISTRATION ERROR [None]
